FAERS Safety Report 18518144 (Version 1)
Quarter: 2020Q4

REPORT INFORMATION
  Report Type: Spontaneous
  Country: SE (occurrence: SE)
  Receive Date: 20201118
  Receipt Date: 20201118
  Transmission Date: 20210114
  Serious: Yes (Hospitalization)
  Sender: FDA-Public Use
  Company Number: SE-MYLANLABS-2020M1094795

PATIENT
  Age: 75 Year
  Sex: Female

DRUGS (1)
  1. BISOPROLOL [Suspect]
     Active Substance: BISOPROLOL
     Indication: PRODUCT USED FOR UNKNOWN INDICATION
     Dosage: UNK

REACTIONS (2)
  - Asthenia [Unknown]
  - Product substitution issue [Unknown]

NARRATIVE: CASE EVENT DATE: 2010
